FAERS Safety Report 18766070 (Version 1)
Quarter: 2021Q1

REPORT INFORMATION
  Report Type: Spontaneous
  Country: CN (occurrence: CN)
  Receive Date: 20210120
  Receipt Date: 20210120
  Transmission Date: 20210419
  Serious: Yes (Other)
  Sender: FDA-Public Use
  Company Number: CN-JNJFOC-20210125448

PATIENT

DRUGS (3)
  1. CHILDRENS MOTRIN [Suspect]
     Active Substance: IBUPROFEN
     Indication: PYREXIA
     Route: 065
     Dates: start: 20210112
  2. MOTRIN INFANTS [Suspect]
     Active Substance: IBUPROFEN
     Indication: PYREXIA
     Route: 065
     Dates: start: 20210113
  3. CHILDRENS MOTRIN [Suspect]
     Active Substance: IBUPROFEN
     Route: 065
     Dates: start: 20210113

REACTIONS (3)
  - Wrong technique in product usage process [Unknown]
  - Choking [Unknown]
  - Vomiting [Unknown]
